FAERS Safety Report 6833453-X (Version None)
Quarter: 2010Q3

REPORT INFORMATION
  Report Type: 
  Country: None (occurrence: None)
  Receive Date: 20100712
  Receipt Date: 20070326
  Transmission Date: 20110219
  Serious: No
  Sender: FDA-Public Use
  Company Number: US-PFIZER INC-2007024726

PATIENT
  Sex: Female
  Weight: 70.31 kg

DRUGS (8)
  1. CHANTIX [Suspect]
     Indication: SMOKING CESSATION THERAPY
     Dates: start: 20070301, end: 20070325
  2. CELEXA [Concomitant]
     Indication: DEPRESSION
  3. CRESTOR [Concomitant]
     Indication: BLOOD CHOLESTEROL INCREASED
  4. XANAX [Concomitant]
  5. NASACORT [Concomitant]
     Indication: NASAL DISORDER
  6. QVAR 40 [Concomitant]
     Indication: ASTHMA
     Route: 055
  7. VITAMINS [Concomitant]
  8. NICOTINE [Concomitant]

REACTIONS (10)
  - ABNORMAL DREAMS [None]
  - ANXIETY [None]
  - ARTHRALGIA [None]
  - FEELING ABNORMAL [None]
  - HEADACHE [None]
  - HYPERHIDROSIS [None]
  - MUSCLE SPASMS [None]
  - MYALGIA [None]
  - PYREXIA [None]
  - SLEEP DISORDER [None]
